FAERS Safety Report 9434226 (Version 1)
Quarter: 2013Q3

REPORT INFORMATION
  Report Type: Spontaneous
  Country: US (occurrence: None)
  Receive Date: 20130730
  Receipt Date: 20130730
  Transmission Date: 20140515
  Serious: Yes (Other)
  Sender: FDA-Public Use
  Company Number: None

PATIENT
  Sex: Female

DRUGS (1)
  1. MELOXICAM [Suspect]
     Dosage: ONCE A DAY

REACTIONS (2)
  - Weight increased [None]
  - Pollakiuria [None]
